FAERS Safety Report 10683674 (Version 6)
Quarter: 2015Q2

REPORT INFORMATION
  Report Type: Spontaneous
  Country: US (occurrence: US)
  Receive Date: 20141230
  Receipt Date: 20150622
  Transmission Date: 20150821
  Serious: Yes (Hospitalization, Other)
  Sender: FDA-Public Use
  Company Number: US-ELI_LILLY_AND_COMPANY-US201412008239

PATIENT
  Age: 79 Year
  Sex: Male

DRUGS (21)
  1. TYLENOL WITH CODEINE [Concomitant]
     Active Substance: ACETAMINOPHEN\CODEINE PHOSPHATE
  2. FLONASE                            /00908302/ [Concomitant]
  3. PLAVIX [Concomitant]
     Active Substance: CLOPIDOGREL BISULFATE
  4. RANEXA [Suspect]
     Active Substance: RANOLAZINE
     Indication: PRODUCT USED FOR UNKNOWN INDICATION
     Route: 065
  5. LEVEMIR [Concomitant]
     Active Substance: INSULIN DETEMIR
     Dosage: UNK, EACH EVENING
  6. AMITRIPTYLINE [Concomitant]
     Active Substance: AMITRIPTYLINE
  7. HUMALOG [Suspect]
     Active Substance: INSULIN LISPRO
     Dosage: 100 U, QD
     Route: 065
  8. HUMALOG [Suspect]
     Active Substance: INSULIN LISPRO
     Dosage: 100 U, QD
     Route: 065
  9. JANUVIA [Concomitant]
     Active Substance: SITAGLIPTIN PHOSPHATE
  10. VOLTAREN [Concomitant]
     Active Substance: DICLOFENAC SODIUM
  11. HUMALOG [Suspect]
     Active Substance: INSULIN LISPRO
     Indication: TYPE 2 DIABETES MELLITUS
     Dosage: 100 U, QD
     Route: 065
     Dates: start: 2013
  12. LOPRESSOR [Suspect]
     Active Substance: METOPROLOL TARTRATE
     Indication: PRODUCT USED FOR UNKNOWN INDICATION
     Route: 065
  13. LEVEMIR [Concomitant]
     Active Substance: INSULIN DETEMIR
     Dosage: UNK, OTHER
  14. OXYCODONE [Concomitant]
     Active Substance: OXYCODONE
  15. BENICAR [Concomitant]
     Active Substance: OLMESARTAN MEDOXOMIL
  16. IMDUR [Concomitant]
     Active Substance: ISOSORBIDE MONONITRATE
  17. NORVASC [Concomitant]
     Active Substance: AMLODIPINE BESYLATE
  18. GABAPENTIN. [Concomitant]
     Active Substance: GABAPENTIN
  19. METFORMIN [Concomitant]
     Active Substance: METFORMIN HYDROCHLORIDE
  20. VICODIN [Concomitant]
     Active Substance: ACETAMINOPHEN\HYDROCODONE BITARTRATE
  21. ASPIRIN                            /00002701/ [Concomitant]
     Active Substance: ASPIRIN

REACTIONS (20)
  - Chest pain [Unknown]
  - Renal impairment [Unknown]
  - Crushing injury of trunk [Unknown]
  - Myocardial infarction [Unknown]
  - Myocardial infarction [Recovered/Resolved]
  - Pain in extremity [Unknown]
  - General physical condition abnormal [Unknown]
  - Pneumonia [Unknown]
  - Fall [Unknown]
  - Blood glucose increased [Unknown]
  - Neuropathy peripheral [Unknown]
  - Asthenia [Unknown]
  - Drug ineffective [Unknown]
  - Arterial occlusive disease [Unknown]
  - Hypotension [Unknown]
  - Pain [Unknown]
  - Blood glucose fluctuation [Not Recovered/Not Resolved]
  - Arthritis [Unknown]
  - Sleep disorder [Unknown]
  - Visual impairment [Unknown]

NARRATIVE: CASE EVENT DATE: 201402
